FAERS Safety Report 8773156 (Version 2)
Quarter: 2012Q4

REPORT INFORMATION
  Report Type: 
  Country: US (occurrence: US)
  Receive Date: 20120908
  Receipt Date: 20121207
  Transmission Date: 20130627
  Serious: Yes (Hospitalization)
  Sender: FDA-Public Use
  Company Number: US-B.I. PHARMACEUTICALS,INC./RIDGEFIELD-2012-BP-21336BP

PATIENT
  Age: 78 Year
  Sex: Female
  Weight: 49.9 kg

DRUGS (7)
  1. PRADAXA [Suspect]
     Indication: ATRIAL FIBRILLATION
     Dosage: 150 mg
     Route: 048
     Dates: start: 201112, end: 20120817
  2. NORVASC [Concomitant]
     Indication: HYPERTENSION
     Dosage: 5 mg
  3. ATENOLOL [Concomitant]
     Indication: HYPERTENSION
     Dosage: 50 mg
  4. CALCIUM CARBONATE [Concomitant]
  5. LASIX [Concomitant]
     Dosage: 20 mg
  6. SYNTHROID [Concomitant]
  7. PRAVACHOL [Concomitant]
     Dosage: 40 mg

REACTIONS (3)
  - Transient ischaemic attack [Recovered/Resolved]
  - Contusion [Unknown]
  - Feeling cold [Unknown]
